FAERS Safety Report 7268339-2 (Version None)
Quarter: 2011Q1

REPORT INFORMATION
  Report Type: 
  Country: None (occurrence: None)
  Receive Date: 20110201
  Receipt Date: 20110121
  Transmission Date: 20110831
  Serious: Yes (Other)
  Sender: FDA-Public Use
  Company Number: US-BAYER-2011-007717

PATIENT
  Sex: Female

DRUGS (3)
  1. UNCODEABLE ^UNCLASSIFIABLE^ [Suspect]
     Dosage: DAILY DOSE 4 DF
  2. AMITIZA [Suspect]
     Indication: COLONIC OBSTRUCTION
  3. PHILLIPS' MILK OF MAGNESIA LIQUID ORIGINAL [Suspect]
     Indication: COLONIC OBSTRUCTION
     Dosage: 2 TO 4 TIMES A DAY

REACTIONS (1)
  - COLONIC OBSTRUCTION [None]
